FAERS Safety Report 14500984 (Version 1)
Quarter: 2018Q1

REPORT INFORMATION
  Report Type: Spontaneous
  Country: US (occurrence: US)
  Receive Date: 20180207
  Receipt Date: 20180207
  Transmission Date: 20180509
  Serious: No
  Sender: FDA-Public Use
  Company Number: US-AMGEN-USASP2017157212

PATIENT
  Age: 72 Year
  Sex: Female
  Weight: 46.8 kg

DRUGS (2)
  1. NEULASTA [Suspect]
     Active Substance: PEGFILGRASTIM
     Dosage: 6 MG, UNK
     Route: 058
     Dates: start: 20171012
  2. NEULASTA [Suspect]
     Active Substance: PEGFILGRASTIM
     Indication: NEUTROPENIA
     Dosage: UNK
     Route: 058
     Dates: end: 2016

REACTIONS (3)
  - Application site haemorrhage [Recovered/Resolved]
  - Application site bruise [Recovered/Resolved]
  - Application site mass [Recovered/Resolved]

NARRATIVE: CASE EVENT DATE: 201710
